FAERS Safety Report 12864673 (Version 2)
Quarter: 2017Q1

REPORT INFORMATION
  Report Type: Other
  Country: JP (occurrence: JP)
  Receive Date: 20161020
  Receipt Date: 20170104
  Transmission Date: 20170428
  Serious: Yes (Life-Threatening, Hospitalization)
  Sender: FDA-Public Use
  Company Number: JP-ACTELION-A-CH2016-143922

PATIENT
  Age: 18 Year
  Sex: Female

DRUGS (9)
  1. FERROUS CITRATE NA [Concomitant]
     Active Substance: SODIUM FERROUS CITRATE
  2. LASIX [Concomitant]
     Active Substance: FUROSEMIDE
  3. TRACLEER [Concomitant]
     Active Substance: BOSENTAN
     Indication: PULMONARY ARTERIAL HYPERTENSION
     Dosage: 62.5 MG, UNK
  4. ALDACTONE [Concomitant]
     Active Substance: SPIRONOLACTONE
  5. EPOPROSTENOL ACT [Suspect]
     Active Substance: EPOPROSTENOL
     Indication: PULMONARY ARTERIAL HYPERTENSION
     Dosage: 0.5 NG/KG, PER MIN
     Route: 042
     Dates: start: 20150323
  6. EPOPROSTENOL ACT [Suspect]
     Active Substance: EPOPROSTENOL
     Dosage: 39.6 ?G, PER MIN
     Route: 042
     Dates: end: 20150917
  7. ADCIRCA [Concomitant]
     Active Substance: TADALAFIL
  8. GLUCONSAN K [Concomitant]
  9. OXYGEN. [Concomitant]
     Active Substance: OXYGEN

REACTIONS (6)
  - Platelet count decreased [Not Recovered/Not Resolved]
  - Therapeutic embolisation [Unknown]
  - Haemoptysis [Recovering/Resolving]
  - Pulmonary oedema [Recovering/Resolving]
  - Therapeutic response decreased [Unknown]
  - Platelet transfusion [Unknown]

NARRATIVE: CASE EVENT DATE: 20150407
